FAERS Safety Report 7138546-8 (Version None)
Quarter: 2010Q4

REPORT INFORMATION
  Report Type: 
  Country: None (occurrence: None)
  Receive Date: 20101202
  Receipt Date: 20101202
  Transmission Date: 20110411
  Serious: Yes (Other)
  Sender: FDA-Public Use
  Company Number: None

PATIENT
  Age: 49 Year
  Sex: Male
  Weight: 100.2449 kg

DRUGS (1)
  1. WELLBUTRIN XL [Suspect]
     Indication: DEPRESSION
     Dosage: WELLBUTRIN XL 150 MG BID PO
     Route: 048
     Dates: start: 20101020, end: 20101030

REACTIONS (3)
  - PRURITUS [None]
  - RASH GENERALISED [None]
  - SWELLING FACE [None]
